FAERS Safety Report 21540214 (Version 1)
Quarter: 2022Q4

REPORT INFORMATION
  Report Type: Other
  Country: US (occurrence: None)
  Receive Date: 20221102
  Receipt Date: 20221102
  Transmission Date: 20230112
  Serious: Yes (Other)
  Sender: FDA-Public Use
  Company Number: US-ROCHE-3208934

PATIENT
  Age: 44 Year
  Sex: Female
  Weight: 94.432 kg

DRUGS (8)
  1. OCREVUS [Suspect]
     Active Substance: OCRELIZUMAB
     Indication: Relapsing-remitting multiple sclerosis
     Dosage: 300 MG ON DA1 AND 15, THEN 600 MG ONCE IN 6 MONTHS.
     Route: 042
  2. ALBUTEROL [Concomitant]
     Active Substance: ALBUTEROL
  3. PAROXETINE [Concomitant]
     Active Substance: PAROXETINE
  4. AMANTADINE [Concomitant]
     Active Substance: AMANTADINE
  5. LEVETIRACETAM [Concomitant]
     Active Substance: LEVETIRACETAM
  6. PREGABALIN [Concomitant]
     Active Substance: PREGABALIN
  7. WOMAN^S DAILY MULTIVITAMIN [Concomitant]
  8. HYDROCODONE [Concomitant]
     Active Substance: HYDROCODONE

REACTIONS (7)
  - Hepatitis B [Not Recovered/Not Resolved]
  - Loss of consciousness [Recovered/Resolved]
  - Nausea [Not Recovered/Not Resolved]
  - Vomiting [Not Recovered/Not Resolved]
  - Hypoaesthesia [Recovered/Resolved]
  - Ill-defined disorder [Recovered/Resolved]
  - Pain [Recovered/Resolved]

NARRATIVE: CASE EVENT DATE: 20221010
